FAERS Safety Report 8317364-9 (Version None)
Quarter: 2012Q2

REPORT INFORMATION
  Report Type: 
  Country: None (occurrence: None)
  Receive Date: 20120427
  Receipt Date: 20120416
  Transmission Date: 20120825
  Serious: Yes (Hospitalization)
  Sender: FDA-Public Use
  Company Number: JP-NOVOPROD-349632

PATIENT
  Age: 83 Year
  Sex: Male
  Weight: 50 kg

DRUGS (9)
  1. LEVOTHYROXINE SODIUM [Concomitant]
     Indication: HYPOTHYROIDISM
     Dosage: 25MCG/PO
     Dates: start: 20111227
  2. PRADAXA [Concomitant]
     Indication: ATRIAL FIBRILLATION
     Dosage: 220 MG, QD
     Route: 048
     Dates: start: 20110706, end: 20110914
  3. NOVORAPID CHU FLEXPEN [Suspect]
     Indication: TYPE 1 DIABETES MELLITUS
     Dosage: 12UT/SC
     Route: 058
     Dates: start: 20111003, end: 20111027
  4. RABEPRAZOLE SODIUM [Concomitant]
     Indication: GASTRITIS
     Dosage: 10 MG, QD
     Route: 048
  5. APIDRA [Concomitant]
     Indication: TYPE 1 DIABETES MELLITUS
     Dosage: 14 UT
     Route: 058
     Dates: start: 20111027, end: 20111227
  6. NOVOLIN R [Concomitant]
     Indication: TYPE 1 DIABETES MELLITUS
     Dosage: 6.4 UT
     Route: 058
     Dates: start: 20111227
  7. HUMALOG [Concomitant]
     Indication: TYPE 1 DIABETES MELLITUS
     Dosage: 18 UT
     Route: 058
     Dates: start: 20110704, end: 20110914
  8. GASMOTIN [Concomitant]
     Indication: GASTRITIS
     Dosage: 5 MG, QD
     Route: 048
  9. LANTUS [Concomitant]
     Indication: TYPE 1 DIABETES MELLITUS
     Dosage: 7 UT
     Route: 058

REACTIONS (1)
  - HEPATIC FUNCTION ABNORMAL [None]
